FAERS Safety Report 18431921 (Version 1)
Quarter: 2020Q4

REPORT INFORMATION
  Report Type: Spontaneous
  Country: CN (occurrence: CN)
  Receive Date: 20201027
  Receipt Date: 20201027
  Transmission Date: 20210114
  Serious: Yes (Other)
  Sender: FDA-Public Use
  Company Number: CN-BAXTER-2020BAX021711

PATIENT
  Age: 36 Year
  Sex: Female

DRUGS (3)
  1. 20% MANNITOL INJECTION [Suspect]
     Active Substance: MANNITOL
     Indication: INTERVERTEBRAL DISC PROTRUSION
  2. 20% MANNITOL INJECTION [Suspect]
     Active Substance: MANNITOL
     Indication: SCIATICA
  3. 20% MANNITOL INJECTION [Suspect]
     Active Substance: MANNITOL
     Indication: SYMPTOMATIC TREATMENT
     Route: 041
     Dates: start: 20201013, end: 20201013

REACTIONS (2)
  - Infusion related reaction [Recovering/Resolving]
  - Chills [Recovering/Resolving]

NARRATIVE: CASE EVENT DATE: 20201013
